FAERS Safety Report 4329846-5 (Version None)
Quarter: 2004Q1

REPORT INFORMATION
  Report Type: 
  Country: None (occurrence: None)
  Receive Date: 20040329
  Receipt Date: 20021024
  Transmission Date: 20041129
  Serious: Yes (Hospitalization, Other)
  Sender: FDA-Public Use
  Company Number: 2002IC000307

PATIENT
  Age: 66 Year
  Sex: Male

DRUGS (5)
  1. FLUOROURACIL [Suspect]
     Indication: COLON CANCER
     Dosage: SEE IMAGE
     Route: 042
     Dates: start: 20010206, end: 20010213
  2. FLUOROURACIL [Suspect]
     Indication: COLON CANCER
     Dosage: SEE IMAGE
     Route: 042
     Dates: start: 20010220, end: 20010313
  3. ISOVORIN [Suspect]
     Indication: COLON CANCER
     Dosage: 400 MG; INTRAVENOUS
     Route: 042
     Dates: start: 20010206, end: 20010313
  4. KRESTIN [Concomitant]
  5. BIOFERMIN [Concomitant]

REACTIONS (11)
  - ALOPECIA [None]
  - DERMATITIS [None]
  - DIARRHOEA [None]
  - EOSINOPHILIA [None]
  - HAEMATURIA [None]
  - HYPOKALAEMIA [None]
  - HYPOPROTEINAEMIA [None]
  - PIGMENTATION DISORDER [None]
  - PROTEINURIA [None]
  - VOMITING [None]
  - WEIGHT DECREASED [None]
